FAERS Safety Report 7039179-4 (Version None)
Quarter: 2010Q4

REPORT INFORMATION
  Report Type: 
  Country: None (occurrence: None)
  Receive Date: 20101012
  Receipt Date: 20101004
  Transmission Date: 20110411
  Serious: Yes (Hospitalization, Other)
  Sender: FDA-Public Use
  Company Number: US-B.I. PHARMACEUTICALS,INC./RIDGEFIELD-2010-BP-11255PF

PATIENT
  Age: 45 Year
  Sex: Female

DRUGS (27)
  1. SPIRIVA [Suspect]
  2. GEODON [Suspect]
     Dosage: 160 MG
  3. GEODON [Suspect]
     Dosage: 80 MG
  4. GEODON [Suspect]
     Dosage: 10 MG
     Route: 030
  5. ABILIFY [Concomitant]
  6. TOPAMAX [Concomitant]
     Dosage: 400 MG
  7. ACETAMINOPHEN [Concomitant]
  8. ZOLPIDEM [Concomitant]
  9. SYNTHROID [Concomitant]
  10. BACTRIM [Concomitant]
  11. IMIPRAZOLE [Concomitant]
  12. NITROGLYCERIN [Concomitant]
  13. NICOTINE [Concomitant]
  14. MAGNESIUM HYDROXIDE TAB [Concomitant]
  15. LORAZEPAM [Concomitant]
  16. LOPERAMIDE HCL [Concomitant]
  17. LEVATHYROXIN [Concomitant]
  18. LAMICTAL [Concomitant]
     Dosage: 400 MG
  19. ISOSORBIDE MONONITRATE [Concomitant]
  20. FISH OIL [Concomitant]
  21. DEPAKOTE [Concomitant]
  22. DIPHENHYDRAMINE HCL [Concomitant]
  23. DILTIAZEM HCL [Concomitant]
  24. CALCIUM CARBONATE [Concomitant]
  25. ASPIRIN [Concomitant]
  26. ALPRAZOLAM [Concomitant]
  27. HALDOL [Concomitant]

REACTIONS (2)
  - COMA [None]
  - CONDITION AGGRAVATED [None]
